FAERS Safety Report 11231158 (Version 1)
Quarter: 2015Q2

REPORT INFORMATION
  Report Type: Spontaneous
  Country: US (occurrence: None)
  Receive Date: 20150629
  Receipt Date: 20150629
  Transmission Date: 20150821
  Serious: No
  Sender: FDA-Public Use
  Company Number: None

PATIENT
  Age: 48 Year
  Sex: Female
  Weight: 74.84 kg

DRUGS (1)
  1. AMOXICILLIN/CLAVULAN 125MG AUROBINDO [Suspect]
     Active Substance: AMOXICILLIN\CLAVULANATE POTASSIUM
     Indication: TOOTH INFECTION
     Route: 048

REACTIONS (4)
  - Vomiting [None]
  - Breast pain [None]
  - Bone pain [None]
  - Abdominal pain upper [None]

NARRATIVE: CASE EVENT DATE: 20150627
